FAERS Safety Report 21026976 (Version 1)
Quarter: 2022Q2

REPORT INFORMATION
  Report Type: Spontaneous
  Country: IN (occurrence: IN)
  Receive Date: 20220630
  Receipt Date: 20220630
  Transmission Date: 20220721
  Serious: Yes (Other)
  Sender: FDA-Public Use
  Company Number: IN-ALS-000744

PATIENT
  Age: 64 Year
  Sex: Male

DRUGS (2)
  1. QUETIAPINE [Suspect]
     Active Substance: QUETIAPINE
     Indication: Product use in unapproved indication
     Dosage: 12.5 MG/NIGHT (VERY LOW SINGLE DOSE QUETIAPINE)
     Route: 048
  2. MIRTAZAPINE [Suspect]
     Active Substance: MIRTAZAPINE
     Indication: Insomnia
     Dosage: 3.75 MG/NIGHT
     Route: 048

REACTIONS (6)
  - Myoclonus [Recovered/Resolved]
  - Condition aggravated [Recovered/Resolved]
  - Intentional dose omission [Unknown]
  - Product use in unapproved indication [Unknown]
  - Fear of falling [Unknown]
  - Underdose [Unknown]
